FAERS Safety Report 16532453 (Version 1)
Quarter: 2019Q3

REPORT INFORMATION
  Report Type: Spontaneous
  Country: US (occurrence: US)
  Receive Date: 20190704
  Receipt Date: 20190704
  Transmission Date: 20191004
  Serious: No
  Sender: FDA-Public Use
  Company Number: US-RECKITT BENCKISER HEALTHCARE INT LIMITED-RB-80269-2019

PATIENT
  Age: 82 Year
  Sex: Female

DRUGS (1)
  1. MUCINEX DM [Suspect]
     Active Substance: DEXTROMETHORPHAN HYDROBROMIDE\GUAIFENESIN
     Indication: MALAISE
     Dosage: 600 MILLIGRAM, SINGLE
     Route: 065
     Dates: start: 20190103

REACTIONS (7)
  - Somnolence [Recovered/Resolved]
  - Cough [Unknown]
  - Fatigue [Unknown]
  - Oropharyngeal pain [Unknown]
  - Insomnia [Unknown]
  - Feeling abnormal [Unknown]
  - Dizziness [Recovered/Resolved]

NARRATIVE: CASE EVENT DATE: 20190103
